FAERS Safety Report 23708997 (Version 3)
Quarter: 2024Q2

REPORT INFORMATION
  Report Type: Spontaneous
  Country: US (occurrence: US)
  Receive Date: 20240404
  Receipt Date: 20240412
  Transmission Date: 20240715
  Serious: No
  Sender: FDA-Public Use
  Company Number: US-PFIZER INC-202400077681

PATIENT
  Sex: Female

DRUGS (2)
  1. SILVADENE [Suspect]
     Active Substance: SILVER SULFADIAZINE
     Indication: Burns third degree
     Dosage: UNK, 2X/DAY
     Dates: start: 202404
  2. SILVADENE [Suspect]
     Active Substance: SILVER SULFADIAZINE
     Indication: Thermal burn

REACTIONS (4)
  - Product communication issue [Unknown]
  - Skin exfoliation [Unknown]
  - Skin discolouration [Unknown]
  - Secretion discharge [Unknown]

NARRATIVE: CASE EVENT DATE: 20240401
